FAERS Safety Report 6973205-3 (Version None)
Quarter: 2010Q3

REPORT INFORMATION
  Report Type: 
  Country: None (occurrence: None)
  Receive Date: 20100909
  Receipt Date: 20100831
  Transmission Date: 20110219
  Serious: Yes (Other)
  Sender: FDA-Public Use
  Company Number: FR-ROCHE-724924

PATIENT
  Sex: Male

DRUGS (7)
  1. MYCOPHENOLATE MOFETIL [Suspect]
     Indication: LIVER TRANSPLANT
     Dosage: LAST DOSE PRIOR TO ONSET OF SAE: 05 OCTOBER 2009.
     Route: 048
     Dates: start: 20090923
  2. PREDNISONE [Suspect]
     Indication: LIVER TRANSPLANT
     Route: 048
     Dates: start: 20090923
  3. TACROLIMUS [Suspect]
     Indication: PRODUCT USED FOR UNKNOWN INDICATION
     Route: 065
     Dates: start: 20090923
  4. LASIX [Concomitant]
     Dates: start: 20090922, end: 20091014
  5. ROVALCYTE [Concomitant]
     Dates: start: 20090923, end: 20090929
  6. LOVENOX [Concomitant]
     Dates: start: 20090924, end: 20091014
  7. DUPHALAC [Concomitant]
     Dates: start: 20090926, end: 20091005

REACTIONS (2)
  - NEUROPATHY PERIPHERAL [None]
  - WOUND SECRETION [None]
